FAERS Safety Report 8117178-9 (Version None)
Quarter: 2012Q1

REPORT INFORMATION
  Report Type: 
  Country: None (occurrence: None)
  Receive Date: 20120206
  Receipt Date: 20111215
  Transmission Date: 20120608
  Serious: Yes (Hospitalization)
  Sender: FDA-Public Use
  Company Number: BY-B.I. PHARMACEUTICALS,INC./RIDGEFIELD-2012-AP-00015AP

PATIENT
  Sex: Female

DRUGS (4)
  1. MIRAPEX [Suspect]
     Indication: PARKINSON'S DISEASE
  2. AMANTADINE HCL [Concomitant]
  3. MIRAPEX [Suspect]
     Indication: FAHR'S DISEASE
     Dosage: 3.75 MG
     Route: 048
     Dates: start: 20111112, end: 20111113
  4. TRIHEXYPHENIDYL HCL [Concomitant]

REACTIONS (1)
  - FEELING ABNORMAL [None]
